FAERS Safety Report 14304801 (Version 1)
Quarter: 2017Q4

REPORT INFORMATION
  Report Type: Spontaneous
  Country: JP (occurrence: JP)
  Receive Date: 20171219
  Receipt Date: 20171219
  Transmission Date: 20180321
  Serious: Yes (Life-Threatening, Hospitalization, Other)
  Sender: FDA-Public Use
  Company Number: JP-OTSUKA-03100-JPN-06-0554

PATIENT
  Age: 64 Year
  Sex: Male
  Weight: 44.5 kg

DRUGS (12)
  1. LULLAN [Suspect]
     Active Substance: PEROSPIRONE HYDROCHLORIDE
     Dosage: 16 MG, BID
     Route: 048
     Dates: start: 20060713, end: 20060822
  2. ABILIFY [Suspect]
     Active Substance: ARIPIPRAZOLE
     Dosage: 6 MG, QD
     Route: 048
     Dates: start: 20060810, end: 20060821
  3. CONTOMIN [Suspect]
     Active Substance: CHLORPROMAZINE
     Dosage: 50 MG, BID
     Route: 048
     Dates: start: 20060713, end: 20060822
  4. LEVOMEPROMAZINE [Suspect]
     Active Substance: LEVOMEPROMAZINE
     Indication: SCHIZOPHRENIA
     Dosage: 5 MG, QD
     Route: 048
     Dates: start: 20060713, end: 20060821
  5. PEROSPIRONE [Suspect]
     Active Substance: PEROSPIRONE
     Indication: SCHIZOPHRENIA
     Dosage: 32 MG, QD
     Dates: start: 20060713, end: 20060822
  6. CHLORPROMAZINE HIBENZATE [Suspect]
     Active Substance: CHLORPROMAZINE HIBENZATE
     Indication: SCHIZOPHRENIA
     Dosage: 100 MG, QD
     Route: 048
     Dates: start: 20060713, end: 20060822
  7. BIPERIDEN HCL [Suspect]
     Active Substance: BIPERIDEN HYDROCHLORIDE
     Indication: PARKINSONISM
     Dosage: 4 MG, QD
     Route: 048
     Dates: start: 20060713
  8. HIRNAMIN [Suspect]
     Active Substance: PHENOTHIAZINE
     Dosage: 5 MG, QD
     Route: 048
     Dates: start: 20060713, end: 20060821
  9. FLUNITRAZEPAM [Suspect]
     Active Substance: FLUNITRAZEPAM
     Indication: INSOMNIA
     Dosage: 2 MG, QD
     Route: 048
     Dates: start: 20060713, end: 20060821
  10. TASMOLIN [Suspect]
     Active Substance: BIPERIDEN
     Dosage: 2 MG, BID
     Route: 048
     Dates: start: 20060713
  11. FLUNITRAZEPAM [Suspect]
     Active Substance: FLUNITRAZEPAM
     Dosage: 2 MG, QD
     Route: 048
     Dates: start: 20060713, end: 20060821
  12. RISPERIDONE. [Concomitant]
     Active Substance: RISPERIDONE
     Dosage: UNK
     Route: 048
     Dates: end: 200609

REACTIONS (5)
  - Poriomania [Unknown]
  - Restlessness [Recovered/Resolved]
  - Agitation [Recovered/Resolved]
  - Gait disturbance [Not Recovered/Not Resolved]
  - Insomnia [Recovered/Resolved]

NARRATIVE: CASE EVENT DATE: 20060811
